FAERS Safety Report 24940972 (Version 1)
Quarter: 2025Q1

REPORT INFORMATION
  Report Type: Report from Study
  Country: CA (occurrence: CA)
  Receive Date: 20250207
  Receipt Date: 20250207
  Transmission Date: 20250409
  Serious: Yes (Other)
  Sender: TEVA
  Company Number: CA-TEVA-VS-3295000

PATIENT
  Sex: Female

DRUGS (2)
  1. CLINDAMYCIN [Suspect]
     Active Substance: CLINDAMYCIN
     Indication: Tooth infection
     Route: 065
  2. STELARA [Suspect]
     Active Substance: USTEKINUMAB
     Indication: Colitis ulcerative
     Dosage: DOSAGE FORM: SOLUTION SUBCUTANEOUS
     Route: 058

REACTIONS (7)
  - Crohn^s disease [Not Recovered/Not Resolved]
  - Drug ineffective [Not Recovered/Not Resolved]
  - Nausea [Not Recovered/Not Resolved]
  - Tooth infection [Not Recovered/Not Resolved]
  - Infection [Not Recovered/Not Resolved]
  - Diarrhoea [Not Recovered/Not Resolved]
  - Oral candidiasis [Not Recovered/Not Resolved]
